FAERS Safety Report 7540216-9 (Version None)
Quarter: 2011Q2

REPORT INFORMATION
  Report Type: 
  Country: None (occurrence: None)
  Receive Date: 20110610
  Receipt Date: 20110601
  Transmission Date: 20111010
  Serious: Yes (Hospitalization)
  Sender: FDA-Public Use
  Company Number: JP-NOVOPROD-327389

PATIENT
  Age: 65 Year
  Sex: Male
  Weight: 53 kg

DRUGS (9)
  1. NOVORAPID CHU [Concomitant]
     Indication: TYPE 2 DIABETES MELLITUS
     Dosage: 8-6-0 U/DAY
  2. ASPIRIN [Concomitant]
     Indication: CEREBRAL INFARCTION
     Dosage: 100 MG, QD
     Route: 048
     Dates: start: 20030101
  3. VICTOZA [Suspect]
     Indication: TYPE 2 DIABETES MELLITUS
     Dosage: 0.3 MG, QD
     Route: 058
     Dates: start: 20100908
  4. PLAVIX [Concomitant]
     Indication: CEREBRAL INFARCTION
     Dosage: 75 MG, QD
     Route: 048
     Dates: start: 20030101
  5. FERRUM                             /00023502/ [Concomitant]
     Indication: ANAEMIA
     Dosage: 100 MG, QD
     Route: 048
     Dates: start: 20090801, end: 20100908
  6. VICTOZA [Suspect]
     Dosage: 0.6 MG, QD
     Route: 058
     Dates: start: 20100915
  7. VICTOZA [Suspect]
     Dosage: 0.9 MG, QD
     Route: 058
     Dates: start: 20101006, end: 20110427
  8. CINAL [Concomitant]
     Indication: ANAEMIA
     Dosage: 1 G, QD
     Route: 048
     Dates: start: 20090801, end: 20100908
  9. NOVORAPID 30 MIX CHU [Concomitant]
     Indication: TYPE 2 DIABETES MELLITUS
     Dosage: 0-0-10 U/DAY

REACTIONS (1)
  - OESOPHAGEAL ULCER [None]
